FAERS Safety Report 25966416 (Version 1)
Quarter: 2025Q4

REPORT INFORMATION
  Report Type: Spontaneous
  Country: US (occurrence: US)
  Receive Date: 20251028
  Receipt Date: 20251028
  Transmission Date: 20260118
  Serious: No
  Sender: PADAGIS
  Company Number: US-PADAGIS-2025PAD01320

PATIENT

DRUGS (6)
  1. KETOCONAZOLE [Suspect]
     Active Substance: KETOCONAZOLE
     Indication: Trichophytosis
     Dosage: UNK
     Route: 061
  2. ECONAZOLE NITRATE [Suspect]
     Active Substance: ECONAZOLE NITRATE
     Indication: Trichophytosis
     Dosage: UNK
     Route: 061
  3. FLUCONAZOLE [Suspect]
     Active Substance: FLUCONAZOLE
     Indication: Trichophytosis
     Dosage: 10.2 MG/KG, WEEKLY
     Route: 048
  4. GRISEOFULVIN [Concomitant]
     Active Substance: GRISEOFULVIN
     Indication: Trichophytosis
     Dosage: 20 MG/KG, BID
     Route: 065
  5. GRISEOFULVIN [Concomitant]
     Active Substance: GRISEOFULVIN
     Dosage: 25 MG/KG, BID
     Route: 065
  6. TERBINAFINE [Concomitant]
     Active Substance: TERBINAFINE
     Indication: Trichophytosis
     Dosage: 4.2 MG/KG, DAILY
     Route: 048

REACTIONS (3)
  - Drug ineffective [Unknown]
  - Product use in unapproved indication [Unknown]
  - Product use issue [Unknown]
